FAERS Safety Report 15180949 (Version 1)
Quarter: 2018Q3

REPORT INFORMATION
  Report Type: Not Available
  Country: US (occurrence: US)
  Receive Date: 20180723
  Receipt Date: 20180723
  Transmission Date: 20181010
  Serious: Yes (Hospitalization)
  Sender: FDA-Public Use
  Company Number: US-NEUROCRINE BIOSCIENCES INC.-2018NBI02194

PATIENT
  Age: 78 Year
  Sex: Female

DRUGS (16)
  1. FLUOXETINE [Concomitant]
     Active Substance: FLUOXETINE HYDROCHLORIDE
  2. RISPERDAL [Concomitant]
     Active Substance: RISPERIDONE
  3. INGREZZA [Suspect]
     Active Substance: VALBENAZINE
     Indication: PRODUCT USED FOR UNKNOWN INDICATION
     Route: 048
     Dates: start: 20180523, end: 20180529
  4. CELEBREX [Concomitant]
     Active Substance: CELECOXIB
  5. LORAZEPAM. [Concomitant]
     Active Substance: LORAZEPAM
  6. DILTIAZEM. [Concomitant]
     Active Substance: DILTIAZEM
  7. OXYBUTYNIN. [Concomitant]
     Active Substance: OXYBUTYNIN CHLORIDE
  8. INGREZZA [Suspect]
     Active Substance: VALBENAZINE
     Route: 048
     Dates: start: 20180530, end: 20180607
  9. CRANBERRY. [Concomitant]
     Active Substance: CRANBERRY
  10. TETRABENAZINE. [Concomitant]
     Active Substance: TETRABENAZINE
  11. VITAMIN D3 [Concomitant]
     Active Substance: CHOLECALCIFEROL
  12. DIPHENOXYLATE?ATROPINE [Concomitant]
     Active Substance: ATROPINE\DIPHENOXYLATE
  13. DONEPEZIL. [Concomitant]
     Active Substance: DONEPEZIL
  14. MULTIVITAMIN [Concomitant]
     Active Substance: VITAMINS
  15. OMEPRAZOLE. [Concomitant]
     Active Substance: OMEPRAZOLE
  16. BENZONATATE. [Concomitant]
     Active Substance: BENZONATATE

REACTIONS (3)
  - Fall [Unknown]
  - Catatonia [Unknown]
  - Drug ineffective [None]

NARRATIVE: CASE EVENT DATE: 20180601
